FAERS Safety Report 21493022 (Version 1)
Quarter: 2022Q4

REPORT INFORMATION
  Report Type: Spontaneous
  Country: PL (occurrence: PL)
  Receive Date: 20221021
  Receipt Date: 20221021
  Transmission Date: 20230112
  Serious: Yes (Other)
  Sender: FDA-Public Use
  Company Number: PL-002147023-NVSC2022PL226265

PATIENT
  Age: 59 Year
  Sex: Female
  Weight: 80 kg

DRUGS (7)
  1. SULFASALAZINE [Suspect]
     Active Substance: SULFASALAZINE
     Indication: Psoriatic arthropathy
     Dosage: 3 G, QD
     Route: 065
     Dates: start: 201307, end: 201308
  2. SULFASALAZINE [Suspect]
     Active Substance: SULFASALAZINE
     Indication: Pustular psoriasis
  3. ADALIMUMAB [Suspect]
     Active Substance: ADALIMUMAB
     Indication: Psoriatic arthropathy
     Dosage: FREQ:2 WK;40 MG, BIW
     Route: 065
     Dates: start: 201307, end: 201308
  4. ADALIMUMAB [Suspect]
     Active Substance: ADALIMUMAB
     Indication: Pustular psoriasis
  5. INFLIXIMAB [Concomitant]
     Active Substance: INFLIXIMAB
     Indication: Product used for unknown indication
     Dosage: 1 DOSAGE FORM, QD (D/8 WEEKS)
     Route: 065
     Dates: start: 201312, end: 201911
  6. ACITRETIN [Concomitant]
     Active Substance: ACITRETIN
     Indication: Product used for unknown indication
     Dosage: UNK, 25-50 MG, QD
     Route: 065
     Dates: start: 201312, end: 201911
  7. ACITRETIN [Concomitant]
     Active Substance: ACITRETIN
     Dosage: UNK, 80-50 MG QD
     Route: 065
     Dates: start: 201309, end: 201312

REACTIONS (4)
  - Skin lesion [Unknown]
  - Pyrexia [Unknown]
  - Neutrophilia [Unknown]
  - Rash pustular [Unknown]
